FAERS Safety Report 6752911-X (Version None)
Quarter: 2010Q2

REPORT INFORMATION
  Report Type: 
  Country: None (occurrence: None)
  Receive Date: 20100602
  Receipt Date: 20100602
  Transmission Date: 20101027
  Serious: Yes (Hospitalization)
  Sender: FDA-Public Use
  Company Number: None

PATIENT
  Age: 39 Year
  Sex: Female
  Weight: 61.4 kg

DRUGS (1)
  1. FLECTOR [Suspect]
     Indication: MUSCLE STRAIN
     Dosage: 1/3 OF THE PATCH 1 TIME ON RIGHT SHOULDER
     Dates: start: 20100216, end: 20100217

REACTIONS (10)
  - ABDOMINAL PAIN [None]
  - BACK PAIN [None]
  - FEAR [None]
  - HEADACHE [None]
  - HEART RATE INCREASED [None]
  - HEPATIC ENZYME INCREASED [None]
  - HYPERTENSION [None]
  - PAIN IN EXTREMITY [None]
  - VOMITING [None]
  - WRONG TECHNIQUE IN DRUG USAGE PROCESS [None]
